FAERS Safety Report 10211280 (Version 1)
Quarter: 2014Q2

REPORT INFORMATION
  Report Type: Spontaneous
  Country: BR (occurrence: BR)
  Receive Date: 20140602
  Receipt Date: 20140602
  Transmission Date: 20141212
  Serious: Yes (Other)
  Sender: FDA-Public Use
  Company Number: BR-GLAXOSMITHKLINE-A1075152A

PATIENT
  Age: 65 Year
  Sex: Male

DRUGS (8)
  1. COMBODART [Suspect]
     Indication: PROSTATITIS
     Dosage: 1CAP PER DAY
     Route: 048
     Dates: start: 2013, end: 2013
  2. MICARDIS [Concomitant]
  3. MEMANTINE [Concomitant]
  4. ASPIRIN [Concomitant]
  5. DONEPEZIL [Concomitant]
  6. TRAZODONE [Concomitant]
  7. SIMVASTATIN [Concomitant]
  8. RISPERIDONE [Concomitant]

REACTIONS (3)
  - Dementia Alzheimer^s type [Not Recovered/Not Resolved]
  - Dysphagia [Not Recovered/Not Resolved]
  - Drug administration error [Not Recovered/Not Resolved]
